FAERS Safety Report 9407520 (Version 1)
Quarter: 2013Q3

REPORT INFORMATION
  Report Type: Spontaneous
  Country: US (occurrence: US)
  Receive Date: 20130718
  Receipt Date: 20130718
  Transmission Date: 20140515
  Serious: Yes (Other)
  Sender: FDA-Public Use
  Company Number: US-BAYER-2013-085047

PATIENT
  Sex: Male

DRUGS (6)
  1. BAYER GENUINE ASPIRIN ORIGINAL STRENGTH [Suspect]
  2. NEURONTIN [Concomitant]
     Dosage: 600 MG, TID
     Route: 048
  3. NEXIUM [Concomitant]
     Dosage: TAKE 1 CAPSULE BY MOUTH EVERY MORNING BEFORE BREAKFAST
     Route: 048
  4. PRILOSEC [Concomitant]
     Dosage: 20 MG, QD
     Route: 048
  5. RISPERDAL [Concomitant]
     Dosage: 0.5 MG, QD
     Route: 048
  6. ZOLOFT [Concomitant]
     Dosage: TAKE 1 TABLET BU MOUTH NIGHTLY
     Route: 048

REACTIONS (1)
  - Anaphylactic reaction [None]
